FAERS Safety Report 9285909 (Version 2)
Quarter: 2013Q3

REPORT INFORMATION
  Report Type: Spontaneous
  Country: US (occurrence: US)
  Receive Date: 20130513
  Receipt Date: 20130906
  Transmission Date: 20140515
  Serious: Yes (Hospitalization, Other)
  Sender: FDA-Public Use
  Company Number: US-BAYER-2013-059055

PATIENT
  Age: 38 Year
  Sex: Female

DRUGS (5)
  1. YAZ [Suspect]
     Indication: MENSTRUAL CYCLE MANAGEMENT
     Dosage: UNK
     Dates: start: 2010, end: 2011
  2. YASMIN [Suspect]
     Dosage: UNK
     Dates: start: 2010, end: 2011
  3. OCELLA [Suspect]
     Dosage: UNK
     Dates: start: 2010, end: 2011
  4. CLARITIN [Concomitant]
     Dosage: 10 MG, DAILY
     Route: 048
     Dates: start: 20110309
  5. PROTONIX [Concomitant]
     Dosage: 10 MG, DAILY
     Route: 048
     Dates: start: 20110309

REACTIONS (11)
  - Deep vein thrombosis [None]
  - Thrombosis [None]
  - Deep vein thrombosis [Recovered/Resolved]
  - Thrombophlebitis superficial [Recovered/Resolved]
  - Injury [None]
  - Anxiety [None]
  - Pain [None]
  - Abdominal pain [None]
  - General physical health deterioration [None]
  - Emotional distress [None]
  - Pain [None]
